FAERS Safety Report 4308349-8 (Version None)
Quarter: 2004Q1

REPORT INFORMATION
  Report Type: 
  Country: None (occurrence: None)
  Receive Date: 20040301
  Receipt Date: 20021210
  Transmission Date: 20041129
  Serious: Yes (Other)
  Sender: FDA-Public Use
  Company Number: PHBS2002ES15065

PATIENT
  Age: 69 Year
  Sex: Male

DRUGS (1)
  1. HYDERGINA [Suspect]
     Indication: VERTIGO
     Dosage: 4.5 MG/DAY
     Route: 048
     Dates: start: 20020415, end: 20020426

REACTIONS (2)
  - NERVOUSNESS [None]
  - VISUAL DISTURBANCE [None]
